FAERS Safety Report 12833681 (Version 2)
Quarter: 2017Q1

REPORT INFORMATION
  Report Type: Spontaneous
  Country: JP (occurrence: JP)
  Receive Date: 20161010
  Receipt Date: 20170127
  Transmission Date: 20170428
  Serious: Yes (Hospitalization)
  Sender: FDA-Public Use
  Company Number: JP-ALLERGAN-1671222US

PATIENT
  Age: 39 Year
  Sex: Male

DRUGS (3)
  1. MEILAX [Concomitant]
     Active Substance: ETHYL LOFLAZEPATE
     Indication: PRODUCT USED FOR UNKNOWN INDICATION
     Dosage: UNK, UNKNOWN
     Route: 065
  2. SULPIRIDE [Concomitant]
     Active Substance: SULPIRIDE
     Indication: PRODUCT USED FOR UNKNOWN INDICATION
     Dosage: UNK, UNKNOWN
     Route: 065
  3. ACAMPROSATE CALCIUM UNK [Suspect]
     Active Substance: ACAMPROSATE CALCIUM
     Indication: PRODUCT USED FOR UNKNOWN INDICATION
     Dosage: 333 MG, UNKNOWN
     Route: 048

REACTIONS (1)
  - Arrhythmia [Recovered/Resolved]
